FAERS Safety Report 9612514 (Version 2)
Quarter: 2013Q4

REPORT INFORMATION
  Report Type: Spontaneous
  Country: ES (occurrence: ES)
  Receive Date: 20131010
  Receipt Date: 20131011
  Transmission Date: 20140711
  Serious: Yes (Death, Other)
  Sender: FDA-Public Use
  Company Number: ES-JNJFOC-20131000849

PATIENT
  Age: 38 Year
  Sex: Female

DRUGS (1)
  1. CAELYX [Suspect]
     Indication: INVASIVE DUCTAL BREAST CARCINOMA
     Route: 042
     Dates: start: 201108, end: 201111

REACTIONS (3)
  - Disease progression [Fatal]
  - Gamma-glutamyltransferase increased [Unknown]
  - Transaminases increased [Not Recovered/Not Resolved]
